FAERS Safety Report 6931758-5 (Version None)
Quarter: 2010Q3

REPORT INFORMATION
  Report Type: 
  Country: None (occurrence: None)
  Receive Date: 20100819
  Receipt Date: 20100809
  Transmission Date: 20110219
  Serious: Yes (Other)
  Sender: FDA-Public Use
  Company Number: JP-PFIZER INC-2010100216

PATIENT
  Age: 78 Year
  Sex: Female

DRUGS (8)
  1. LIPITOR [Suspect]
     Dosage: 5 MG, DAILY
     Route: 048
  2. NORVASC [Concomitant]
     Dosage: UNK
     Route: 048
  3. LASIX [Concomitant]
     Dosage: UNK
     Route: 048
  4. NU LOTAN [Concomitant]
     Dosage: UNK
     Route: 048
  5. RABEPRAZOLE SODIUM [Concomitant]
     Dosage: UNK
     Route: 048
  6. SELBEX [Concomitant]
     Dosage: UNK
     Route: 048
  7. HALCION [Concomitant]
     Dosage: UNK
     Route: 048
  8. ALDACTONE [Concomitant]
     Dosage: UNK
     Route: 048

REACTIONS (1)
  - BRADYCARDIA [None]
